FAERS Safety Report 8568465-1 (Version None)
Quarter: 2012Q3

REPORT INFORMATION
  Report Type: 
  Country: None (occurrence: None)
  Receive Date: 20120803
  Receipt Date: 20120206
  Transmission Date: 20120928
  Serious: No
  Sender: FDA-Public Use
  Company Number: US-ABBOTT-12P-163-0901895-00

PATIENT
  Sex: Male
  Weight: 72.64 kg

DRUGS (6)
  1. NIASPAN [Suspect]
     Indication: BLOOD TRIGLYCERIDES INCREASED
     Dosage: 500MG AT BEDTIME; ONCE PER DAY
     Route: 048
  2. UNKNOWN MEDICATIONS [Concomitant]
     Indication: PRODUCT USED FOR UNKNOWN INDICATION
  3. NIASPAN [Suspect]
     Dosage: 1000 MG BID
     Route: 048
  4. ASPIRIN [Concomitant]
     Indication: PRODUCT USED FOR UNKNOWN INDICATION
     Dosage: 30 MINUTES PRIOR TO NIASPAN
     Route: 048
  5. NIASPAN [Suspect]
     Dosage: 1000MG AT BEDTIME; ONCE PER DAY
     Route: 048
  6. NIASPAN [Suspect]
     Route: 048
     Dates: start: 20110101

REACTIONS (4)
  - FEELING HOT [None]
  - NIGHT SWEATS [None]
  - DRUG INEFFECTIVE [None]
  - FLUSHING [None]
